FAERS Safety Report 15477135 (Version 1)
Quarter: 2018Q4

REPORT INFORMATION
  Report Type: Report from Study
  Country: BR (occurrence: BR)
  Receive Date: 20181009
  Receipt Date: 20181009
  Transmission Date: 20190205
  Serious: Yes (Death, Other)
  Sender: FDA-Public Use
  Company Number: BR-ROCHE-2167445

PATIENT
  Sex: Male

DRUGS (1)
  1. TECENTRIQ [Suspect]
     Active Substance: ATEZOLIZUMAB
     Indication: LUNG NEOPLASM MALIGNANT
     Route: 065

REACTIONS (7)
  - Pneumonitis [Unknown]
  - Drug ineffective [Unknown]
  - Lung neoplasm malignant [Unknown]
  - Respiratory failure [Fatal]
  - Respiratory tract infection [Unknown]
  - Computerised tomogram thorax abnormal [Unknown]
  - Pruritus generalised [Recovered/Resolved]
